FAERS Safety Report 7934914-2 (Version None)
Quarter: 2011Q4

REPORT INFORMATION
  Report Type: 
  Country: None (occurrence: None)
  Receive Date: 20111122
  Receipt Date: 20111114
  Transmission Date: 20120403
  Serious: Yes (Hospitalization)
  Sender: FDA-Public Use
  Company Number: CA-ASTRAZENECA-2011SE68818

PATIENT
  Age: 64 Year
  Sex: Male
  Weight: 86 kg

DRUGS (8)
  1. ATARAX [Concomitant]
     Dosage: 2 MG/ML
     Route: 048
  2. FLOMAX [Concomitant]
     Route: 048
  3. LEVOTHYROXINE SODIUM [Concomitant]
     Route: 048
  4. NEXIUM [Suspect]
     Route: 048
  5. PROSCAR [Concomitant]
     Route: 048
  6. ATIVAN [Concomitant]
     Route: 060
  7. ASPIRIN [Concomitant]
     Route: 048
  8. RAMIPRIL [Concomitant]
     Route: 048

REACTIONS (5)
  - ANXIETY [None]
  - PRURITUS [None]
  - URTICARIA [None]
  - RASH [None]
  - DYSPNOEA [None]
